FAERS Safety Report 9705663 (Version 2)
Quarter: 2013Q4

REPORT INFORMATION
  Report Type: Spontaneous
  Country: US (occurrence: US)
  Receive Date: 20131122
  Receipt Date: 20131122
  Transmission Date: 20140711
  Serious: Yes (Hospitalization)
  Sender: FDA-Public Use
  Company Number: US-GILEAD-2008-0017339

PATIENT
  Age: 75 Year
  Sex: Female

DRUGS (10)
  1. LETAIRIS [Suspect]
     Indication: PULMONARY ARTERIAL HYPERTENSION
     Route: 048
     Dates: start: 20080424
  2. REVATIO [Concomitant]
  3. COUMADIN [Concomitant]
  4. CARTIA [Concomitant]
  5. FUROSEMIDE [Concomitant]
  6. DIGOXIN [Concomitant]
  7. MICARDIS [Concomitant]
  8. MECLIZINE [Concomitant]
  9. POTASSIUM [Concomitant]
  10. CENTRUM SILVER [Concomitant]

REACTIONS (1)
  - Oedema peripheral [Recovering/Resolving]
